FAERS Safety Report 7912634-8 (Version None)
Quarter: 2011Q4

REPORT INFORMATION
  Report Type: 
  Country: None (occurrence: None)
  Receive Date: 20111114
  Receipt Date: 20111107
  Transmission Date: 20120403
  Serious: Yes (Life-Threatening)
  Sender: FDA-Public Use
  Company Number: FR-PFIZER INC-2011269991

PATIENT
  Age: 69 Year
  Sex: Female

DRUGS (17)
  1. CALCIUM CARBONATE [Suspect]
     Dosage: 1 DF, 1X/DAY
  2. XOLAIR [Suspect]
     Indication: ASTHMA
     Dosage: 300 MG, EVERY TWO WEEKS
     Route: 058
     Dates: start: 20080710, end: 20090801
  3. UTEPLEX [Suspect]
  4. PANTOPRAZOLE SODIUM [Suspect]
     Dosage: 40 MG, 1X/DAY
  5. DEDROGYL [Suspect]
     Dosage: 3 GTT, 1X/DAY
  6. PREDNISONE [Suspect]
     Indication: ASTHMA
     Dosage: 20 MG, DAILY
     Route: 048
     Dates: start: 20060101
  7. SYMBICORT [Suspect]
     Indication: ASTHMA
     Dosage: 2 PUFF/DAY
     Route: 055
     Dates: start: 20100101
  8. PROTELOS [Suspect]
     Indication: OSTEOPOROSIS
     Dosage: 1 SACHET, 1X/DAY
     Route: 048
     Dates: start: 20100101
  9. XOLAIR [Suspect]
     Dosage: UNK (DOSE REDUCED)
     Dates: start: 20090801, end: 20100401
  10. XOLAIR [Suspect]
     Dosage: UNK (DOSE INCREASED)
     Dates: start: 20100401, end: 20100805
  11. BRICANYL [Suspect]
     Indication: ASTHMA
     Dosage: 5 MG, 6X/DAY
     Route: 055
     Dates: start: 20080101
  12. ATROVENT [Suspect]
     Indication: ASTHMA
     Dosage: 0.5 MG, 3X/DAY
     Route: 055
     Dates: start: 20080101
  13. ACETAMINOPHEN [Suspect]
     Dosage: UNK
  14. DESLORATADINE [Suspect]
     Dosage: 1 DF, 1X/DAY
  15. ALDACTONE [Suspect]
     Dosage: 25 MG, DAILY
  16. FENOFIBRATE [Suspect]
     Dosage: 1 DF, 1X/DAY
  17. SINGULAIR [Suspect]
     Indication: ASTHMA
     Dosage: 10 MG, DAILY
     Route: 048

REACTIONS (1)
  - SQUAMOUS CELL CARCINOMA [None]
